FAERS Safety Report 8849614 (Version 1)
Quarter: 2012Q4

REPORT INFORMATION
  Report Type: 
  Country: US (occurrence: US)
  Receive Date: 20121019
  Receipt Date: 20121019
  Transmission Date: 20130627
  Serious: Yes (Other)
  Sender: FDA-Public Use
  Company Number: US-BRISTOL-MYERS SQUIBB COMPANY-17029711

PATIENT
  Age: 66 Year
  Sex: Female

DRUGS (18)
  1. COUMADIN [Suspect]
     Indication: ATRIAL FIBRILLATION
  2. SOTALOL [Suspect]
     Indication: ARRHYTHMIA
  3. XARELTO [Suspect]
     Indication: ATRIAL FIBRILLATION
     Dosage: Tabs
     Route: 048
     Dates: start: 201207, end: 201207
  4. XARELTO [Suspect]
     Indication: CEREBROVASCULAR ACCIDENT PROPHYLAXIS
     Dosage: Tabs
     Route: 048
     Dates: start: 201207, end: 201207
  5. DIGOXIN [Concomitant]
  6. COREG [Concomitant]
  7. LASIX [Concomitant]
  8. SYNTHROID [Concomitant]
  9. LISINOPRIL [Concomitant]
  10. ALDACTONE [Concomitant]
  11. XANAX [Concomitant]
     Indication: ANXIETY
  12. SERTRALINE [Concomitant]
  13. MULTIPLE VITAMINS [Concomitant]
  14. REMERON [Concomitant]
     Dosage: 7.5 mg 1 in 1 hour of sleep
  15. DULCOLAX [Concomitant]
  16. COLACE [Concomitant]
  17. CARAFATE [Concomitant]
  18. OMEPRAZOLE [Concomitant]

REACTIONS (6)
  - Hepatic failure [Recovering/Resolving]
  - Duodenal ulcer [Unknown]
  - Gastritis [Unknown]
  - Coagulopathy [Unknown]
  - Renal failure [Unknown]
  - Failure to thrive [Unknown]
